FAERS Safety Report 6474146-0 (Version None)
Quarter: 2009Q4

REPORT INFORMATION
  Report Type: 
  Country: None (occurrence: None)
  Receive Date: 20091204
  Receipt Date: 20091201
  Transmission Date: 20100525
  Serious: Yes (Hospitalization, Other)
  Sender: FDA-Public Use
  Company Number: US-BAYER-200917212BCC

PATIENT
  Age: 56 Year
  Sex: Male

DRUGS (1)
  1. ASPIRIN [Suspect]
     Indication: STENT PLACEMENT
     Dosage: TOTAL DAILY DOSE: 81 MG  UNIT DOSE: 81 MG
     Route: 048
     Dates: start: 20060501

REACTIONS (3)
  - EYE DISORDER [None]
  - RETINAL HAEMORRHAGE [None]
  - VISUAL IMPAIRMENT [None]
